FAERS Safety Report 23653933 (Version 1)
Quarter: 2024Q1

REPORT INFORMATION
  Report Type: Spontaneous
  Country: ES (occurrence: ES)
  Receive Date: 20240320
  Receipt Date: 20240320
  Transmission Date: 20240409
  Serious: Yes (Other)
  Sender: FDA-Public Use
  Company Number: ES-AEMPS-1494899

PATIENT
  Age: 64 Year
  Sex: Female

DRUGS (5)
  1. LINEZOLID [Suspect]
     Active Substance: LINEZOLID
     Indication: Brain empyema
     Dosage: UNK
     Route: 042
     Dates: start: 20230509, end: 20230523
  2. LINEZOLID [Suspect]
     Active Substance: LINEZOLID
     Indication: Brain empyema
     Dosage: 600 MILLIGRAM
     Route: 048
     Dates: start: 20230524, end: 202306
  3. FUROSEMIDE [Concomitant]
     Active Substance: FUROSEMIDE
     Indication: Brain oedema
     Dosage: UNK
     Route: 042
     Dates: start: 20230512, end: 20230523
  4. MEROPENEM [Concomitant]
     Active Substance: MEROPENEM
     Indication: Brain empyema
     Dosage: UNK
     Route: 042
     Dates: start: 20230509, end: 20230517
  5. LORMETAZEPAM [Concomitant]
     Active Substance: LORMETAZEPAM
     Indication: Anxiolytic therapy
     Dosage: UNK
     Route: 048
     Dates: start: 20230512

REACTIONS (1)
  - Mixed liver injury [Recovered/Resolved]

NARRATIVE: CASE EVENT DATE: 20230517
